FAERS Safety Report 5279816-8 (Version None)
Quarter: 2007Q1

REPORT INFORMATION
  Report Type: 
  Country: None (occurrence: None)
  Receive Date: 20070327
  Receipt Date: 20070327
  Transmission Date: 20070707
  Serious: Yes (Hospitalization)
  Sender: FDA-Public Use
  Company Number: None

PATIENT
  Sex: Male
  Weight: 95.8 kg

DRUGS (4)
  1. VICODIN [Suspect]
     Indication: PAIN
     Dosage: PRN (PO)
     Route: 048
  2. ASPIRIN [Suspect]
     Indication: CORONARY ARTERY DISEASE
     Dosage: DAILY (PO)
     Route: 048
  3. ASPIRIN [Suspect]
     Indication: PROPHYLAXIS
     Dosage: DAILY (PO)
     Route: 048
  4. NAPROXEN [Concomitant]

REACTIONS (5)
  - EROSIVE OESOPHAGITIS [None]
  - GASTRIC ULCER [None]
  - HAEMATEMESIS [None]
  - HELICOBACTER INFECTION [None]
  - ULCER HAEMORRHAGE [None]
